FAERS Safety Report 18261159 (Version 1)
Quarter: 2020Q3

REPORT INFORMATION
  Report Type: Report from Study
  Country: None (occurrence: US)
  Receive Date: 20200914
  Receipt Date: 20200914
  Transmission Date: 20201103
  Serious: Yes (Other)
  Sender: FDA-Public Use
  Company Number: US-ABBVIE-20K-163-3479417-00

PATIENT
  Age: 69 Year
  Sex: Male

DRUGS (1)
  1. RINVOQ [Suspect]
     Active Substance: UPADACITINIB
     Indication: RHEUMATOID ARTHRITIS
     Route: 048

REACTIONS (4)
  - Medical device site joint warmth [Not Recovered/Not Resolved]
  - Knee arthroplasty [Unknown]
  - Knee arthroplasty [Unknown]
  - Medical device site joint swelling [Not Recovered/Not Resolved]

NARRATIVE: CASE EVENT DATE: 20190320
